FAERS Safety Report 24634373 (Version 1)
Quarter: 2024Q4

REPORT INFORMATION
  Report Type: Spontaneous
  Country: GB (occurrence: GB)
  Receive Date: 20241119
  Receipt Date: 20241119
  Transmission Date: 20250114
  Serious: Yes (Disabling, Other)
  Sender: NOVO NORDISK
  Company Number: None

PATIENT
  Age: 33 Year
  Sex: Female

DRUGS (4)
  1. WEGOVY [Suspect]
     Active Substance: SEMAGLUTIDE
     Indication: Weight control
     Dosage: UNK
  2. WEGOVY [Suspect]
     Active Substance: SEMAGLUTIDE
     Dosage: 1.7 MG, QW
     Dates: start: 20241027, end: 20241027
  3. WEGOVY [Suspect]
     Active Substance: SEMAGLUTIDE
     Dosage: UNK
  4. SERTRALINE [Concomitant]
     Active Substance: SERTRALINE HYDROCHLORIDE
     Indication: Adverse drug reaction
     Dosage: UNK

REACTIONS (1)
  - Anxiety disorder [Recovering/Resolving]

NARRATIVE: CASE EVENT DATE: 20241020
